FAERS Safety Report 5220075-X (Version None)
Quarter: 2006Q4

REPORT INFORMATION
  Report Type: 
  Country: None (occurrence: None)
  Receive Date: 20061121
  Receipt Date: 20060920
  Transmission Date: 20070319
  Serious: No
  Sender: FDA-Public Use
  Company Number: TPA2006A01618

PATIENT
  Age: 44 Year
  Sex: Female
  Weight: 50.8029 kg

DRUGS (5)
  1. ROZEREM [Suspect]
     Indication: INSOMNIA
     Dosage: 8 MG, HS, PER ORAL
     Route: 048
     Dates: start: 20060914
  2. ADVAIR (FLUTICASONE PROPIONATE, SALMETEROL XINAFOATE) (INHALANT) [Concomitant]
  3. ALLEGRA [Concomitant]
  4. NEXIUM [Concomitant]
  5. CLONAZEPAM [Concomitant]

REACTIONS (2)
  - INITIAL INSOMNIA [None]
  - MIDDLE INSOMNIA [None]
